FAERS Safety Report 4781725-5 (Version None)
Quarter: 2005Q3

REPORT INFORMATION
  Report Type: 
  Country: None (occurrence: None)
  Receive Date: 20050927
  Receipt Date: 20050912
  Transmission Date: 20060218
  Serious: Yes (Other)
  Sender: FDA-Public Use
  Company Number: 2005127002

PATIENT
  Sex: Female
  Weight: 68.0396 kg

DRUGS (3)
  1. SUDAFED (PSEUDOEPHEDRINE) [Suspect]
     Indication: HYPERSENSITIVITY
     Dosage: 2-14 TABS 3-4 TIMES A DAY, ORAL
     Route: 048
     Dates: end: 20050908
  2. CONTRACEPTIVE, UNSPECIFIED (CONTRACEPTIVE, UNSPECIFIED) [Concomitant]
  3. ANTIHYPERTENSIVES (ANTIHYPERTENSIVES) [Concomitant]

REACTIONS (9)
  - ABNORMAL BEHAVIOUR [None]
  - DRUG DEPENDENCE [None]
  - DRUG WITHDRAWAL SYNDROME [None]
  - INTENTIONAL MISUSE [None]
  - LOGORRHOEA [None]
  - OBSESSIVE-COMPULSIVE DISORDER [None]
  - SWELLING FACE [None]
  - THROAT TIGHTNESS [None]
  - VOMITING [None]
